FAERS Safety Report 22382902 (Version 1)
Quarter: 2023Q2

REPORT INFORMATION
  Report Type: Spontaneous
  Country: US (occurrence: US)
  Receive Date: 20230530
  Receipt Date: 20230530
  Transmission Date: 20230721
  Serious: Yes (Life-Threatening, Hospitalization)
  Sender: FDA-Public Use
  Company Number: US-drreddys-LIT/USA/23/0165898

PATIENT
  Age: 16 Year
  Sex: Female

DRUGS (2)
  1. IBUPROFEN [Suspect]
     Active Substance: IBUPROFEN
     Indication: Product used for unknown indication
  2. NAPROXEN [Suspect]
     Active Substance: NAPROXEN
     Indication: Product used for unknown indication
     Dosage: 41.8GRAMS (656 MG/KG; 63.7KG)

REACTIONS (7)
  - Lactic acidosis [Unknown]
  - Hypotension [Unknown]
  - Disorientation [Unknown]
  - Agitation [Unknown]
  - Lethargy [Unknown]
  - Intentional overdose [Unknown]
  - Intentional product misuse [Unknown]
